FAERS Safety Report 8062727-2 (Version None)
Quarter: 2012Q1

REPORT INFORMATION
  Report Type: 
  Country: None (occurrence: None)
  Receive Date: 20120118
  Receipt Date: 20110112
  Transmission Date: 20120608
  Serious: Yes (Hospitalization)
  Sender: FDA-Public Use
  Company Number: 2011SP031788

PATIENT
  Age: 30 Year
  Sex: Female
  Weight: 137.8935 kg

DRUGS (8)
  1. NUVARING [Suspect]
  2. COUMADIN [Suspect]
     Indication: ANTICOAGULANT THERAPY
     Dates: start: 20091201, end: 20100301
  3. MULTI-VITAMIN [Concomitant]
  4. VITAMIN B COMPLEX CAP [Concomitant]
  5. HYDROCHLOROTHIAZIDE [Concomitant]
  6. HOODIA (HOODIA GORONII) [Concomitant]
  7. NUVARING [Suspect]
     Indication: MENSTRUAL CYCLE MANAGEMENT
     Dates: start: 20090601, end: 20091211
  8. NUVARING [Suspect]
     Indication: CONTRACEPTION
     Dates: start: 20090601, end: 20091211

REACTIONS (14)
  - MULTIPLE INJURIES [None]
  - INTERNATIONAL NORMALISED RATIO DECREASED [None]
  - BRONCHITIS [None]
  - WEIGHT DECREASED [None]
  - MITRAL VALVE PROLAPSE [None]
  - ANKLE FRACTURE [None]
  - BACK PAIN [None]
  - PULMONARY EMBOLISM [None]
  - ANGINA PECTORIS [None]
  - SLEEP APNOEA SYNDROME [None]
  - DEPRESSION [None]
  - HYPERTENSION [None]
  - BLOOD CHOLESTEROL ABNORMAL [None]
  - CARDIOMEGALY [None]
